FAERS Safety Report 25853298 (Version 1)
Quarter: 2025Q3

REPORT INFORMATION
  Report Type: Spontaneous
  Country: EU (occurrence: EU)
  Receive Date: 20250926
  Receipt Date: 20250926
  Transmission Date: 20251020
  Serious: Yes (Other)
  Sender: BAUSCH AND LOMB
  Company Number: EU-JNJFOC-20250919273

PATIENT
  Sex: Female

DRUGS (3)
  1. DEXAMETHASONE [Suspect]
     Active Substance: DEXAMETHASONE
     Indication: Hypergammaglobulinaemia benign monoclonal
     Route: 065
     Dates: start: 20230921
  2. BORTEZOMIB [Suspect]
     Active Substance: BORTEZOMIB
     Indication: Hypergammaglobulinaemia benign monoclonal
     Route: 065
     Dates: start: 20230921
  3. POMALIDOMIDE [Suspect]
     Active Substance: POMALIDOMIDE
     Indication: Hypergammaglobulinaemia benign monoclonal
     Route: 065
     Dates: start: 20230921

REACTIONS (2)
  - Hypergammaglobulinaemia benign monoclonal [Unknown]
  - Off label use [Unknown]

NARRATIVE: CASE EVENT DATE: 20241201
